APPROVED DRUG PRODUCT: FUROSEMIDE
Active Ingredient: FUROSEMIDE
Strength: 20MG
Dosage Form/Route: TABLET;ORAL
Application: A216629 | Product #001 | TE Code: AB
Applicant: GRAVITI PHARMACEUTICALS PRIVATE LTD
Approved: Oct 17, 2022 | RLD: No | RS: No | Type: RX